FAERS Safety Report 4408509-1 (Version None)
Quarter: 2004Q3

REPORT INFORMATION
  Report Type: 
  Country: None (occurrence: None)
  Receive Date: 20040722
  Receipt Date: 20040709
  Transmission Date: 20050211
  Serious: Yes (Hospitalization)
  Sender: FDA-Public Use
  Company Number: 207912

PATIENT
  Age: 49 Year
  Sex: Female
  Weight: 71 kg

DRUGS (6)
  1. MABTHERA (RITUXIMAB) CONC FOR SOLUTION FOR INFUSION, 100MG [Suspect]
     Indication: B-CELL LYMPHOMA
     Dosage: 600 MG
     Dates: start: 20040616, end: 20040616
  2. CYCLOPHOSPHAMIDE [Concomitant]
  3. DOXORUBICIN (DOXORUBICN HYDROCHLORIDE, DOXORUBICIN) [Concomitant]
  4. VINCRISTINE [Concomitant]
  5. PREDNISONE [Concomitant]
  6. PEGFILGRASTIM (PEGFILGRASTIM) [Concomitant]

REACTIONS (6)
  - ALANINE AMINOTRANSFERASE INCREASED [None]
  - ASPARTATE AMINOTRANSFERASE INCREASED [None]
  - GAMMA-GLUTAMYLTRANSFERASE INCREASED [None]
  - INFUSION RELATED REACTION [None]
  - NEUTROPENIA [None]
  - THROAT TIGHTNESS [None]
